FAERS Safety Report 24130992 (Version 2)
Quarter: 2024Q3

REPORT INFORMATION
  Report Type: Report from Study
  Country: US (occurrence: US)
  Receive Date: 20240724
  Receipt Date: 20240820
  Transmission Date: 20241016
  Serious: Yes (Hospitalization)
  Sender: TAKEDA
  Company Number: US-TAKEDA-2024TUS069803

PATIENT
  Sex: Female

DRUGS (2)
  1. FRUQUINTINIB [Suspect]
     Active Substance: FRUQUINTINIB
     Indication: Product used for unknown indication
     Dosage: 5 MILLIGRAM
     Route: 048
     Dates: start: 20240626
  2. FRUQUINTINIB [Suspect]
     Active Substance: FRUQUINTINIB
     Dosage: 3 MILLIGRAM
     Route: 048
     Dates: start: 202406

REACTIONS (6)
  - Pyrexia [Recovering/Resolving]
  - Blood pressure decreased [Recovering/Resolving]
  - Dehydration [Unknown]
  - Stomatitis [Unknown]
  - Nausea [Unknown]
  - Decreased appetite [Unknown]
